FAERS Safety Report 7125955-6 (Version None)
Quarter: 2010Q4

REPORT INFORMATION
  Report Type: 
  Country: None (occurrence: None)
  Receive Date: 20101129
  Receipt Date: 20101122
  Transmission Date: 20110411
  Serious: Yes (Hospitalization)
  Sender: FDA-Public Use
  Company Number: CA-ABBOTT-10P-028-0683620-00

PATIENT
  Sex: Female
  Weight: 49.94 kg

DRUGS (1)
  1. HUMIRA [Suspect]
     Indication: CROHN'S DISEASE
     Route: 058
     Dates: start: 20100104

REACTIONS (12)
  - ABDOMINAL PAIN UPPER [None]
  - ARTHRITIS [None]
  - ASTHENIA [None]
  - BURNING SENSATION [None]
  - CHEST PAIN [None]
  - DIARRHOEA [None]
  - DRUG DOSE OMISSION [None]
  - FATIGUE [None]
  - HYPOAESTHESIA [None]
  - NECK PAIN [None]
  - PYREXIA [None]
  - VIRAL INFECTION [None]
